FAERS Safety Report 6695975-4 (Version None)
Quarter: 2010Q2

REPORT INFORMATION
  Report Type: 
  Country: None (occurrence: None)
  Receive Date: 20100412
  Receipt Date: 20090902
  Transmission Date: 20101027
  Serious: Yes (Other)
  Sender: FDA-Public Use
  Company Number: E-09-092 (09-139)

PATIENT
  Age: 61 Year
  Sex: Male

DRUGS (6)
  1. PREDNISONE [Suspect]
     Indication: RASH
     Dosage: 3 P.O. QD, THEN TAPER
     Dates: start: 20090610, end: 20090620
  2. LOVASTATIN [Concomitant]
  3. SEROQUEL [Concomitant]
  4. ALPRAZOLAM [Concomitant]
  5. ASPIRIN [Concomitant]
  6. CILOSTAZOL [Concomitant]

REACTIONS (1)
  - DRUG INEFFECTIVE [None]
